FAERS Safety Report 25122205 (Version 1)
Quarter: 2025Q1

REPORT INFORMATION
  Report Type: Spontaneous
  Country: CN (occurrence: CN)
  Receive Date: 20250326
  Receipt Date: 20250326
  Transmission Date: 20250409
  Serious: Yes (Life-Threatening)
  Sender: GE HEALTHCARE
  Company Number: CN-GE HEALTHCARE-2025CSU003522

PATIENT
  Age: 56 Year
  Sex: Male
  Weight: 68 kg

DRUGS (4)
  1. OMNIPAQUE [Suspect]
     Active Substance: IOHEXOL
     Indication: Cavagram
     Route: 042
     Dates: start: 20250228, end: 20250228
  2. LIDOCAINE HYDROCHLORIDE [Suspect]
     Active Substance: LIDOCAINE HYDROCHLORIDE
     Indication: Anaesthesia
     Dosage: 0.1 GM, QD
     Route: 061
     Dates: start: 20250228, end: 20250228
  3. UROKINASE [Concomitant]
     Active Substance: UROKINASE
     Indication: Thrombolysis
     Dosage: 200000 U, QD
     Route: 042
     Dates: start: 20250228, end: 20250228
  4. SODIUM CHLORIDE [Concomitant]
     Active Substance: SODIUM CHLORIDE
     Indication: Vehicle solution use
     Dosage: 100 ML, QD
     Route: 042
     Dates: start: 20250228, end: 20250228

REACTIONS (8)
  - Abdominal distension [Recovered/Resolved]
  - Cyanosis [Recovered/Resolved]
  - Rash erythematous [Recovered/Resolved]
  - Tachycardia [Recovered/Resolved]
  - Vomiting [Recovered/Resolved]
  - Blood pressure increased [Recovered/Resolved]
  - Chest discomfort [Recovered/Resolved]
  - Abdominal pain [Recovered/Resolved]

NARRATIVE: CASE EVENT DATE: 20250228
